FAERS Safety Report 8854581 (Version 3)
Quarter: 2013Q3

REPORT INFORMATION
  Report Type: Report from Study
  Country: CN (occurrence: CN)
  Receive Date: 20121023
  Receipt Date: 20130920
  Transmission Date: 20140515
  Serious: Yes (Life-Threatening)
  Sender: FDA-Public Use
  Company Number: CN-PFIZER INC-2012259475

PATIENT
  Age: 43 Year
  Sex: Male
  Weight: 110 kg

DRUGS (7)
  1. AXITINIB [Suspect]
     Indication: METASTATIC RENAL CELL CARCINOMA
     Dosage: 5 MG, 2X/DAY
     Route: 048
     Dates: start: 20091214
  2. INDAPAMIDE [Suspect]
     Indication: HYPERTENSION
     Dosage: 1 DF (TABLET), DISCONTINUOUS
     Route: 048
     Dates: start: 20120915
  3. METOPROLOL [Concomitant]
     Indication: HYPERTENSION
     Dosage: 25 MG, 2X/DAY
     Route: 048
  4. TELMISARTAN [Concomitant]
     Indication: HYPERTENSION
     Dosage: 40 MG, 2X/DAY
     Route: 048
  5. LEVAMLODIPINE [Concomitant]
     Indication: HYPERTENSION
     Dosage: 2.5 MG, 2X/DAY
     Route: 048
  6. SMECTITE [Concomitant]
     Indication: DIARRHOEA
     Dosage: 1 PACKAGE, DISCONTINOUS
     Route: 048
  7. LOSEC [Concomitant]
     Indication: ABDOMINAL PAIN UPPER
     Dosage: 20 MG, DISCONTINUOUS
     Route: 048

REACTIONS (1)
  - Syncope [Recovered/Resolved]
